FAERS Safety Report 7974391-9 (Version None)
Quarter: 2011Q4

REPORT INFORMATION
  Report Type: 
  Country: None (occurrence: None)
  Receive Date: 20111213
  Receipt Date: 20111201
  Transmission Date: 20120403
  Serious: No
  Sender: FDA-Public Use
  Company Number: US-BAYER-2011-115923

PATIENT
  Age: 36 Year
  Sex: Female

DRUGS (3)
  1. BEYAZ [Suspect]
     Indication: CONTRACEPTION
     Dosage: 1 DF, QD
     Route: 048
     Dates: start: 20100101
  2. PHENTERMINE [Concomitant]
     Indication: WEIGHT ABNORMAL
  3. TOPAMAX [Concomitant]
     Indication: WEIGHT ABNORMAL
     Dosage: UNK
     Dates: start: 20111001, end: 20111001

REACTIONS (1)
  - HYPOMENORRHOEA [None]
